FAERS Safety Report 6017522-2 (Version None)
Quarter: 2008Q4

REPORT INFORMATION
  Report Type: 
  Country: None (occurrence: None)
  Receive Date: 20081223
  Receipt Date: 20081217
  Transmission Date: 20090506
  Serious: Yes (Hospitalization)
  Sender: FDA-Public Use
  Company Number: PHHO2008CL07080

PATIENT
  Sex: Male
  Weight: 108 kg

DRUGS (8)
  1. BLINDED NO TREATMENT RECEIVED NOMED [Suspect]
     Indication: GLUCOSE TOLERANCE IMPAIRED
     Dosage: CODE NOT BROKEN
     Route: 048
     Dates: start: 20071112
  2. BLINDED PLACEBO PLACEBO [Suspect]
     Indication: GLUCOSE TOLERANCE IMPAIRED
     Dosage: CODE NOT BROKEN
     Route: 048
     Dates: start: 20071112
  3. STARLIX [Suspect]
     Indication: GLUCOSE TOLERANCE IMPAIRED
     Dosage: CODE NOT BROKEN
     Route: 048
     Dates: start: 20071112
  4. BLINDED NO TREATMENT RECEIVED NOMED [Suspect]
     Dosage: CODE NOT BROKEN
  5. BLINDED PLACEBO PLACEBO [Suspect]
     Dosage: CODE NOT BROKEN
  6. STARLIX [Suspect]
     Dosage: CODE NOT BROKEN
  7. PLACEBO OR VALSARTAN [Suspect]
     Indication: CARDIOVASCULAR DISORDER
     Dosage: CODE NOT BROKEN
     Route: 048
     Dates: start: 20071112
  8. PLACEBO OR VALSARTAN [Suspect]
     Dosage: CODE NOT BROKEN
     Route: 048

REACTIONS (6)
  - ACUTE MYOCARDIAL INFARCTION [None]
  - CHEST PAIN [None]
  - CORONARY ARTERY DISEASE [None]
  - CORONARY ARTERY STENOSIS [None]
  - DISEASE PROGRESSION [None]
  - SURGERY [None]
